FAERS Safety Report 11955725 (Version 2)
Quarter: 2016Q1

REPORT INFORMATION
  Report Type: Report from Study
  Country: US (occurrence: US)
  Receive Date: 20160125
  Receipt Date: 20160201
  Transmission Date: 20160526
  Serious: Yes (Hospitalization)
  Sender: FDA-Public Use
  Company Number: US-ABBVIE-15K-163-1346959-00

PATIENT
  Age: 45 Year
  Sex: Female
  Weight: 50.39 kg

DRUGS (2)
  1. AMETHIA [Concomitant]
     Active Substance: ETHINYL ESTRADIOL\LEVONORGESTREL
     Indication: CONTRACEPTION
  2. HUMIRA [Suspect]
     Active Substance: ADALIMUMAB
     Indication: BACK PAIN
     Route: 058
     Dates: start: 2013

REACTIONS (5)
  - Localised infection [Recovered/Resolved]
  - Drug effect incomplete [Not Recovered/Not Resolved]
  - Injury [Recovered/Resolved]
  - Laceration [Recovered/Resolved]
  - Medical device removal [Recovered/Resolved]

NARRATIVE: CASE EVENT DATE: 201407
